FAERS Safety Report 6804900-4 (Version None)
Quarter: 2010Q2

REPORT INFORMATION
  Report Type: 
  Country: None (occurrence: None)
  Receive Date: 20100628
  Receipt Date: 20070726
  Transmission Date: 20101027
  Serious: No
  Sender: FDA-Public Use
  Company Number: US-PFIZER INC-2007035767

PATIENT
  Sex: Male
  Weight: 104.33 kg

DRUGS (5)
  1. GEODON [Suspect]
     Indication: SLEEP DISORDER
  2. NEURONTIN [Concomitant]
  3. LAMICTAL [Concomitant]
  4. PRILOSEC [Concomitant]
  5. CENTRUM [Concomitant]

REACTIONS (3)
  - FATIGUE [None]
  - SENSATION OF HEAVINESS [None]
  - SOMNOLENCE [None]
